FAERS Safety Report 6733358-9 (Version None)
Quarter: 2010Q2

REPORT INFORMATION
  Report Type: 
  Country: None (occurrence: None)
  Receive Date: 20100520
  Receipt Date: 20100511
  Transmission Date: 20101027
  Serious: Yes (Other)
  Sender: FDA-Public Use
  Company Number: FR-PFIZER INC-2010052214

PATIENT
  Age: 39 Year
  Sex: Male
  Weight: 77 kg

DRUGS (5)
  1. ZOLOFT [Suspect]
     Dosage: 50 UNK, 2X/DAY
     Route: 048
     Dates: start: 20100301
  2. PROGRAF [Interacting]
     Indication: IMMUNOSUPPRESSANT DRUG THERAPY
     Dosage: 5.25 MG, 2X/DAY
     Route: 048
  3. MYFORTIC [Concomitant]
     Dosage: 180 MG, 3X/DAY
     Route: 048
  4. LIPANTHYL [Concomitant]
     Dosage: 145 UNK, 1X/DAY
     Route: 048
  5. EZETROL [Concomitant]
     Dosage: 10 UNK, 1X/DAY
     Route: 048

REACTIONS (3)
  - DRUG INTERACTION [None]
  - DRUG LEVEL DECREASED [None]
  - IMMUNOSUPPRESSANT DRUG LEVEL DECREASED [None]
